FAERS Safety Report 11918019 (Version 1)
Quarter: 2016Q1

REPORT INFORMATION
  Report Type: Spontaneous
  Country: US (occurrence: US)
  Receive Date: 20160114
  Receipt Date: 20160114
  Transmission Date: 20160526
  Serious: Yes (Other)
  Sender: FDA-Public Use
  Company Number: US-BAYER-2016-007376

PATIENT
  Age: 56 Year
  Sex: Female
  Weight: 54.42 kg

DRUGS (1)
  1. ALKA-SELTZER PLUS SEVERE COUGH, MUCUS + CONGESTION DAY/NIGHT [Suspect]
     Active Substance: ACETAMINOPHEN\DEXTROMETHORPHAN HYDROBROMIDE\DOXYLAMINE SUCCINATE\GUAIFENESIN\PHENYLEPHRINE HYDROCHLORIDE
     Indication: NASOPHARYNGITIS
     Dosage: 2 DF, UNK
     Dates: start: 20151219, end: 20151222

REACTIONS (1)
  - Blood pressure increased [None]
